FAERS Safety Report 4823892-0 (Version None)
Quarter: 2005Q4

REPORT INFORMATION
  Report Type: 
  Country: None (occurrence: None)
  Receive Date: 20051107
  Receipt Date: 20051026
  Transmission Date: 20060501
  Serious: Yes (Other)
  Sender: FDA-Public Use
  Company Number: 2005148080

PATIENT
  Age: 48 Year
  Sex: Male
  Weight: 58.9676 kg

DRUGS (9)
  1. LIPITOR [Suspect]
     Indication: BLOOD CHOLESTEROL INCREASED
     Dosage: 10 MG
     Dates: start: 20040101
  2. ATENOLOL [Suspect]
     Indication: HEART RATE
     Dosage: 50 MG (25 MG, 2 IN 1 D)
  3. NUTRITIONAL SUPPLEMENT (GENERAL NUTRIENTS) [Concomitant]
  4. OMEGA (FISH OIL) [Concomitant]
  5. CALCIUM (CALCIUM) [Concomitant]
  6. GLUCOSAMINE (GLUCOSAMINE) [Concomitant]
  7. VITAMIN A (NATURAL) CAP [Concomitant]
  8. B COMPLEX (NICOTINAMIDE, PYRIDOXINE HYDROCHLORIDE,  RIBOFLAVIN, THIAMI [Concomitant]
  9. VITAMIN C (VITAMIN C) [Concomitant]

REACTIONS (5)
  - BLOOD CHOLESTEROL INCREASED [None]
  - DRUG DOSE OMISSION [None]
  - HEART RATE DECREASED [None]
  - OPTIC ATROPHY [None]
  - PAIN IN EXTREMITY [None]
